FAERS Safety Report 17112437 (Version 4)
Quarter: 2019Q4

REPORT INFORMATION
  Report Type: Spontaneous
  Country: US (occurrence: US)
  Receive Date: 20191204
  Receipt Date: 20191220
  Transmission Date: 20200122
  Serious: No
  Sender: FDA-Public Use
  Company Number: US-PFIZER INC-2019520261

PATIENT
  Age: 72 Year
  Sex: Female
  Weight: 55.78 kg

DRUGS (4)
  1. CALCIUM WITH VITAMIN D3 [Concomitant]
     Active Substance: CALCIUM CARBONATE\CHOLECALCIFEROL
     Indication: SUPPLEMENTATION THERAPY
     Dosage: 1 DF, 1X/DAY (600MG CALCIUM WITH VITAMIN D3 400 IU CAPSULE, 1 CAPSULE PER DAY BY MOUTH )
     Route: 048
     Dates: start: 1996
  2. VITAMIN D3 [Concomitant]
     Active Substance: CHOLECALCIFEROL
     Indication: SUPPLEMENTATION THERAPY
     Dosage: 1000 IU, DAILY  (1000 IU GELCAP, 1 GELCAP PER DAY BY MOUTH)
     Route: 048
     Dates: start: 2016
  3. PREMARIN [Suspect]
     Active Substance: ESTROGENS, CONJUGATED
     Indication: VAGINAL INFECTION
     Dosage: UNK, DAILY (USE 1/2 GRAM AT BEDTIME FOR 2 WEEKS, THEN 1/2 GRAM AT BEDTIME TWICE A WEEK)
     Route: 067
     Dates: start: 20191119, end: 20191125
  4. PREMARIN [Suspect]
     Active Substance: ESTROGENS, CONJUGATED
     Indication: VULVOVAGINAL BURNING SENSATION
     Dosage: UNK, TWICE A WEEK (USE 1/2 GRAM AT BEDTIME FOR 2 WEEKS, THEN 1/2 GRAM AT BEDTIME TWICE A WEEK)
     Route: 067
     Dates: start: 20191119, end: 20191125

REACTIONS (4)
  - Tenderness [Recovered/Resolved]
  - Off label use [Recovered/Resolved]
  - Pelvic pain [Recovered/Resolved]
  - Pelvic discomfort [Recovered/Resolved]

NARRATIVE: CASE EVENT DATE: 20191119
